FAERS Safety Report 4773773-6 (Version None)
Quarter: 2005Q3

REPORT INFORMATION
  Report Type: 
  Country: None (occurrence: None)
  Receive Date: 20050919
  Receipt Date: 20050902
  Transmission Date: 20060218
  Serious: Yes (Hospitalization, Other)
  Sender: FDA-Public Use
  Company Number: 12263

PATIENT
  Age: 67 Year
  Sex: Female

DRUGS (10)
  1. AMIODARONE HCL [Suspect]
     Dosage: 200 MG BID PO
     Route: 048
     Dates: start: 20040701, end: 20040701
  2. CODEINE [Concomitant]
  3. PARACETAMOL [Concomitant]
  4. WARFARIN SODIUM [Concomitant]
  5. SERTRALINE HCL [Concomitant]
  6. FELODIPINE [Concomitant]
  7. PERINDOPRIL [Concomitant]
  8. SIMVASTATIN [Concomitant]
  9. LANSOPRAZOLE [Concomitant]
  10. ATENOLOL [Concomitant]

REACTIONS (1)
  - HYPERTHYROIDISM [None]
